FAERS Safety Report 9886350 (Version 1)
Quarter: 2014Q1

REPORT INFORMATION
  Report Type: Spontaneous
  Country: IT (occurrence: IT)
  Receive Date: 20140210
  Receipt Date: 20140210
  Transmission Date: 20141002
  Serious: Yes (Other)
  Sender: FDA-Public Use
  Company Number: IT-WATSON-2014-02094

PATIENT
  Age: 71 Year
  Sex: Female

DRUGS (6)
  1. SPIRONOLACTONE (UNKNOWN) [Suspect]
     Indication: HYPERTENSION
     Dosage: 25 MG DIE, DAILY
     Route: 048
     Dates: start: 20110101, end: 20140123
  2. ACENOCOUMAROL (UNKNOWN) [Suspect]
     Indication: HYPERTENSION
     Dosage: 2 MG/DIE, DAILY
     Route: 048
     Dates: start: 20110101, end: 20140120
  3. LISINOPRIL (UNKNOWN) [Suspect]
     Indication: HYPERTENSION
     Dosage: 5 MG/DIE, DAILY
     Route: 048
     Dates: start: 20110101, end: 20140123
  4. ADALAT [Suspect]
     Indication: HYPERTENSION
     Dosage: 10 MG/DIE, DAILYUNK
     Route: 048
     Dates: start: 20110101, end: 20140123
  5. DIGOXIN [Concomitant]
     Dosage: 0.25 MG, UNK
     Route: 048
     Dates: start: 20110101, end: 20140120
  6. ISOSORBIDE MONONITRATE [Concomitant]
     Dosage: UNK
     Route: 048
     Dates: start: 20110101, end: 20140120

REACTIONS (3)
  - Cerebral haemorrhage [Unknown]
  - Haemoptysis [Unknown]
  - Hypertension [Unknown]
